FAERS Safety Report 24612863 (Version 1)
Quarter: 2024Q4

REPORT INFORMATION
  Report Type: Spontaneous
  Country: US (occurrence: None)
  Receive Date: 20241112
  Receipt Date: 20241112
  Transmission Date: 20250114
  Serious: Yes (unspecified)
  Sender: Public
  Company Number: None

PATIENT
  Age: 64 Year
  Sex: Female

DRUGS (1)
  1. SEMAGLUTIDE [Suspect]
     Active Substance: SEMAGLUTIDE
     Indication: Weight decreased
     Dosage: 2.40 MG QWEEK SUBCUTANEOUS
     Route: 058

REACTIONS (2)
  - Diverticulitis [None]
  - Intestinal obstruction [None]

NARRATIVE: CASE EVENT DATE: 20240917
